FAERS Safety Report 5019539-3 (Version None)
Quarter: 2006Q2

REPORT INFORMATION
  Report Type: 
  Country: None (occurrence: None)
  Receive Date: 20060531
  Receipt Date: 20060516
  Transmission Date: 20061013
  Serious: Yes (Other)
  Sender: FDA-Public Use
  Company Number: WAES 0402SWE00012

PATIENT
  Age: 41 Year
  Sex: Male

DRUGS (4)
  1. ZETIA [Suspect]
     Indication: TYPE IIA HYPERLIPIDAEMIA
     Dosage: SEE IMAGE
     Route: 048
     Dates: start: 20030522, end: 20031222
  2. ZETIA [Suspect]
     Indication: TYPE IIA HYPERLIPIDAEMIA
     Dosage: SEE IMAGE
     Route: 048
     Dates: start: 20031225, end: 20040229
  3. ZOCOR [Suspect]
     Indication: TYPE IIA HYPERLIPIDAEMIA
     Dosage: SEE IMAGE
     Route: 048
     Dates: start: 20030522, end: 20031222
  4. ZOCOR [Suspect]
     Indication: TYPE IIA HYPERLIPIDAEMIA
     Dosage: SEE IMAGE
     Route: 048
     Dates: start: 20031225, end: 20040229

REACTIONS (9)
  - BACK PAIN [None]
  - CONVULSION [None]
  - DIZZINESS [None]
  - FATIGUE [None]
  - LOSS OF CONSCIOUSNESS [None]
  - NAUSEA [None]
  - POOR QUALITY SLEEP [None]
  - PYREXIA [None]
  - RESPIRATORY DISORDER [None]
